FAERS Safety Report 23214986 (Version 2)
Quarter: 2023Q4

REPORT INFORMATION
  Report Type: Report from Study
  Country: US (occurrence: US)
  Receive Date: 20231122
  Receipt Date: 20231215
  Transmission Date: 20240110
  Serious: Yes (Other)
  Sender: FDA-Public Use
  Company Number: US-ALXN-A202313839

PATIENT
  Sex: Female

DRUGS (1)
  1. SOLIRIS [Suspect]
     Active Substance: ECULIZUMAB
     Indication: Paroxysmal nocturnal haemoglobinuria
     Dosage: UNK
     Route: 042
     Dates: start: 20141020

REACTIONS (8)
  - Cataract [Recovering/Resolving]
  - Visual impairment [Unknown]
  - Toothache [Recovering/Resolving]
  - Gingival swelling [Unknown]
  - Tooth disorder [Unknown]
  - Red blood cell count abnormal [Unknown]
  - Illness [Recovering/Resolving]
  - Depression [Unknown]
